FAERS Safety Report 11874167 (Version 2)
Quarter: 2016Q1

REPORT INFORMATION
  Report Type: Spontaneous
  Country: US (occurrence: US)
  Receive Date: 20151229
  Receipt Date: 20160108
  Transmission Date: 20160526
  Serious: Yes (Death)
  Sender: FDA-Public Use
  Company Number: US-BEH-2015057265

PATIENT
  Age: 44 Year
  Sex: Male

DRUGS (9)
  1. IVIG [Suspect]
     Active Substance: HUMAN IMMUNOGLOBULIN G
     Indication: ENCEPHALOMYELITIS
  2. VANCOMYCIN [Suspect]
     Active Substance: VANCOMYCIN
  3. TACROLIMUS. [Suspect]
     Active Substance: TACROLIMUS
  4. IVIG [Suspect]
     Active Substance: HUMAN IMMUNOGLOBULIN G
     Indication: VARICELLA ZOSTER VIRUS INFECTION
  5. AMPHOTERICIN B. [Suspect]
     Active Substance: AMPHOTERICIN B
  6. GANCICLYOVIR [Suspect]
     Active Substance: GANCICLOVIR
  7. ACYCLOVIR. [Suspect]
     Active Substance: ACYCLOVIR
  8. METHYLPREDNISOLONE. [Suspect]
     Active Substance: METHYLPREDNISOLONE
  9. AMPICILLIN [Suspect]
     Active Substance: AMPICILLIN

REACTIONS (6)
  - Pulmonary oedema [Fatal]
  - Mental impairment [Fatal]
  - Renal failure [Fatal]
  - Drug ineffective for unapproved indication [Fatal]
  - Diarrhoea [Fatal]
  - Pleural effusion [Fatal]
